FAERS Safety Report 7921868-8 (Version None)
Quarter: 2011Q4

REPORT INFORMATION
  Report Type: 
  Country: None (occurrence: None)
  Receive Date: 20111117
  Receipt Date: 20111115
  Transmission Date: 20120403
  Serious: Yes (Other)
  Sender: FDA-Public Use
  Company Number: CHPA2011US09713

PATIENT
  Sex: Female

DRUGS (6)
  1. COMTREX COLD+COUGH DAY [Suspect]
     Indication: NASOPHARYNGITIS
     Dosage: UNK DF, UNK
     Route: 048
     Dates: start: 20110101, end: 20110101
  2. COMTREX COLD+COUGH DAY [Suspect]
     Indication: COUGH
  3. COMTREX COLD+COUGH NIGHT [Suspect]
     Indication: NASOPHARYNGITIS
     Dosage: UNK DF, UNK
     Route: 048
     Dates: start: 20110101, end: 20110101
  4. CHOLESTEROL- AND TRIGLYCERIDE REDUCERS [Suspect]
     Indication: BLOOD CHOLESTEROL ABNORMAL
     Dosage: UNK DF, UNK
  5. COMTREX COLD+COUGH NIGHT [Suspect]
     Indication: COUGH
  6. ANTIHYPERTENSIVES [Suspect]
     Indication: BLOOD PRESSURE MANAGEMENT
     Dosage: UNK DF, UNK

REACTIONS (1)
  - HALLUCINATION [None]
